FAERS Safety Report 8557412-4 (Version None)
Quarter: 2012Q3

REPORT INFORMATION
  Report Type: 
  Country: None (occurrence: None)
  Receive Date: 20120801
  Receipt Date: 20120723
  Transmission Date: 20120928
  Serious: Yes (Other)
  Sender: FDA-Public Use
  Company Number: US-ABBOTT-12P-163-0959384-00

PATIENT
  Age: 50 Year
  Sex: Female

DRUGS (4)
  1. BYSTOLIC [Concomitant]
     Indication: BLOOD PRESSURE
  2. HUMIRA [Suspect]
     Indication: ANKYLOSING SPONDYLITIS
     Dates: start: 20110201
  3. SYNTHROID [Concomitant]
     Indication: THYROID DISORDER
  4. OTC VITAMINS [Concomitant]
     Indication: PRODUCT USED FOR UNKNOWN INDICATION

REACTIONS (3)
  - DIABETES MELLITUS [None]
  - INJECTION SITE PAIN [None]
  - INJECTION SITE EXTRAVASATION [None]
